FAERS Safety Report 5370495-8 (Version None)
Quarter: 2007Q2

REPORT INFORMATION
  Report Type: 
  Country: None (occurrence: None)
  Receive Date: 20070625
  Receipt Date: 20070625
  Transmission Date: 20071010
  Serious: No
  Sender: FDA-Public Use
  Company Number: None

PATIENT
  Sex: Female
  Weight: 48.02 kg

DRUGS (3)
  1. CARBOPLATIN [Suspect]
     Dosage: 629 MG
  2. TAXOTERE [Suspect]
     Dosage: 104 MG
  3. TAXOL [Suspect]
     Dosage: 83 MG

REACTIONS (2)
  - NEUTROPHIL COUNT DECREASED [None]
  - URINARY TRACT INFECTION [None]
